FAERS Safety Report 4375902-5 (Version None)
Quarter: 2004Q2

REPORT INFORMATION
  Report Type: 
  Country: None (occurrence: None)
  Receive Date: 20040607
  Receipt Date: 20040520
  Transmission Date: 20050107
  Serious: Yes (Other)
  Sender: FDA-Public Use
  Company Number: K200400811

PATIENT
  Sex: 0

DRUGS (1)
  1. KETALAR [Suspect]

REACTIONS (3)
  - BLADDER DISORDER [None]
  - CYSTITIS ULCERATIVE [None]
  - DRUG INEFFECTIVE [None]
